FAERS Safety Report 6572773-3 (Version None)
Quarter: 2010Q1

REPORT INFORMATION
  Report Type: 
  Country: None (occurrence: None)
  Receive Date: 20100205
  Receipt Date: 20100128
  Transmission Date: 20100710
  Serious: Yes (Life-Threatening, Hospitalization)
  Sender: FDA-Public Use
  Company Number: JP-ABBOTT-10P-087-0621605-00

PATIENT
  Sex: Male
  Weight: 62 kg

DRUGS (8)
  1. HUMIRA [Suspect]
     Indication: RHEUMATOID ARTHRITIS
     Dates: start: 20080912
  2. METHOTREXATE [Concomitant]
     Indication: RHEUMATOID ARTHRITIS
  3. PREDNISOLONE [Concomitant]
     Indication: RHEUMATOID ARTHRITIS
     Dosage: 5 MG, DAILY
     Route: 048
     Dates: start: 20090205
  4. PREDNISOLONE [Concomitant]
     Dosage: 4 MG, DAILY
     Route: 048
     Dates: start: 20090206
  5. KETOPROFEN [Concomitant]
     Indication: RHEUMATOID ARTHRITIS
     Dosage: PRN
     Dates: start: 20081010
  6. REBAMIPIDE [Concomitant]
     Indication: GASTRITIS PROPHYLAXIS
     Dosage: 2 TABS/DAILY
  7. PRANOPROFEN [Concomitant]
     Indication: DRUG USE FOR UNKNOWN INDICATION
     Dosage: 3 TIMES/DAY
     Dates: start: 20081205
  8. PIRENOXINE [Concomitant]
     Indication: DRUG USE FOR UNKNOWN INDICATION
     Dosage: 3 TIMES/DAY
     Dates: start: 20081205

REACTIONS (2)
  - CARDIO-RESPIRATORY ARREST [None]
  - MYOCARDIAL INFARCTION [None]
